FAERS Safety Report 4827807-0 (Version None)
Quarter: 2005Q4

REPORT INFORMATION
  Report Type: 
  Country: None (occurrence: None)
  Receive Date: 20051114
  Receipt Date: 20051114
  Transmission Date: 20060501
  Serious: Yes (Life-Threatening, Hospitalization)
  Sender: FDA-Public Use
  Company Number: None

PATIENT
  Age: 83 Year
  Sex: Male
  Weight: 64.9 kg

DRUGS (2)
  1. PHENYTOIN [Suspect]
     Indication: CONVULSION
  2. CELECOXIB [Suspect]
     Indication: TENDONITIS

REACTIONS (5)
  - RESPIRATORY DISORDER [None]
  - STAPHYLOCOCCAL SCALDED SKIN SYNDROME [None]
  - STEVENS-JOHNSON SYNDROME [None]
  - TONGUE DISORDER [None]
  - TOXIC EPIDERMAL NECROLYSIS [None]
